FAERS Safety Report 4380033-4 (Version None)
Quarter: 2004Q2

REPORT INFORMATION
  Report Type: 
  Country: None (occurrence: None)
  Receive Date: 20040614
  Receipt Date: 20040604
  Transmission Date: 20050107
  Serious: Yes (Death, Disabling)
  Sender: FDA-Public Use
  Company Number: K200400848

PATIENT
  Age: 27 Month
  Sex: Female

DRUGS (21)
  1. SEPTRA [Suspect]
     Dates: start: 20030620, end: 20030707
  2. NEUPOGEN (FILGRASTIM) [Suspect]
     Indication: CHEMOTHERAPY
     Dosage: INTRAVENOUS
     Route: 042
     Dates: start: 20030621, end: 20030625
  3. NEUPOGEN (FILGRASTIM) [Suspect]
     Indication: CHEMOTHERAPY
     Dosage: INTRAVENOUS
     Route: 042
     Dates: start: 20030812
  4. CYTARABINE [Suspect]
     Dosage: INTRAVENOUS
     Route: 042
     Dates: start: 20030620, end: 20030625
  5. CYTARABINE [Suspect]
     Dosage: INTRAVENOUS
     Route: 042
     Dates: start: 20030812
  6. AMPHOTERICIN B [Suspect]
     Dosage: INTRAVENOUS
     Route: 042
     Dates: start: 20030623, end: 20030625
  7. FLUDARABINE PHOSPHATE [Suspect]
     Dosage: 50 MG, INTRAVENOUS
     Route: 042
     Dates: start: 20030621, end: 20030625
  8. ONDANSETRON HYDROCHLORIDE [Concomitant]
  9. CEFTAZIDIME SODIUM [Concomitant]
  10. AMIKACIN [Concomitant]
  11. VANCOMYCIN [Concomitant]
  12. ACETAMINOPHEN [Concomitant]
  13. URATE OXIDASE (URATE OXIDASE) [Concomitant]
  14. DAUNORUBICIN HCL [Concomitant]
  15. HEPARIN [Concomitant]
  16. DEXAMETHASONE SODIUM PHOSPHATE [Concomitant]
  17. DEXCHLORPHENIRAMINE MALEATE (DEXCHLORPHENIRAMINE MALEATE) [Concomitant]
  18. ALIZAPRIDE HYDROCHLORIDE (ALIZAPRIDE HYDROCHLORIDE) [Concomitant]
  19. NICARDIPINE HCL [Concomitant]
  20. ARTIFICIAL TEARS [Concomitant]
  21. ACYCLOVIR [Concomitant]

REACTIONS (11)
  - BLINDNESS [None]
  - ELECTROENCEPHALOGRAM ABNORMAL [None]
  - GASTROINTESTINAL DISORDER [None]
  - GRAFT COMPLICATION [None]
  - MENINGEAL DISORDER [None]
  - MULTI-ORGAN FAILURE [None]
  - NECROSIS [None]
  - OPTIC NERVE INJURY [None]
  - PETIT MAL EPILEPSY [None]
  - PYREXIA [None]
  - VASCULITIS [None]
